FAERS Safety Report 21160396 (Version 1)
Quarter: 2022Q3

REPORT INFORMATION
  Report Type: Spontaneous
  Country: US (occurrence: US)
  Receive Date: 20220802
  Receipt Date: 20220802
  Transmission Date: 20221027
  Serious: No
  Sender: FDA-Public Use
  Company Number: US-drreddys-LIT/USA/22/0152691

PATIENT
  Age: 39 Year
  Sex: Male

DRUGS (2)
  1. ATOMOXETINE [Suspect]
     Active Substance: ATOMOXETINE
     Indication: Attention deficit hyperactivity disorder
  2. ATOMOXETINE [Suspect]
     Active Substance: ATOMOXETINE

REACTIONS (1)
  - Spontaneous ejaculation [Recovered/Resolved]
